FAERS Safety Report 12527103 (Version 3)
Quarter: 2016Q3

REPORT INFORMATION
  Report Type: Report from Study
  Country: SK (occurrence: SK)
  Receive Date: 20160705
  Receipt Date: 20160920
  Transmission Date: 20161109
  Serious: Yes (Other)
  Sender: FDA-Public Use
  Company Number: SK-ASTELLAS-2016US025125

PATIENT
  Age: 66 Year
  Sex: Male

DRUGS (5)
  1. MIRABEGRON [Suspect]
     Active Substance: MIRABEGRON
     Indication: HYPERTONIC BLADDER
     Route: 048
     Dates: start: 20150630, end: 20160628
  2. MINIRIN [Suspect]
     Active Substance: DESMOPRESSIN ACETATE
     Indication: HYPERTONIC BLADDER
     Route: 060
     Dates: start: 20140211, end: 20160126
  3. MINIRIN [Suspect]
     Active Substance: DESMOPRESSIN ACETATE
     Route: 060
     Dates: start: 20160126
  4. HELICID                            /00661201/ [Concomitant]
     Indication: DYSPEPSIA
     Route: 048
     Dates: start: 20070101
  5. NEUROL                             /00595201/ [Concomitant]
     Active Substance: ALPRAZOLAM
     Indication: INSOMNIA
     Dosage: 0.25 MG, ONCE DAILY
     Route: 048
     Dates: start: 20150601

REACTIONS (6)
  - Hypotension [Recovering/Resolving]
  - Vertigo [Recovering/Resolving]
  - Vomiting [Recovered/Resolved]
  - Tachycardia [Recovering/Resolving]
  - Abdominal pain [Recovered/Resolved]
  - Dyspepsia [Recovered/Resolved]

NARRATIVE: CASE EVENT DATE: 20160612
